FAERS Safety Report 7253056-5 (Version None)
Quarter: 2011Q1

REPORT INFORMATION
  Report Type: 
  Country: None (occurrence: None)
  Receive Date: 20110129
  Receipt Date: 20100125
  Transmission Date: 20110831
  Serious: No
  Sender: FDA-Public Use
  Company Number: US-ABBOTT-10P-163-0622374-00

PATIENT
  Sex: Female
  Weight: 69.462 kg

DRUGS (4)
  1. HUMIRA [Suspect]
     Route: 058
     Dates: start: 20090901
  2. METHOTREXATE [Concomitant]
     Indication: RHEUMATOID ARTHRITIS
  3. OXYBUTYNIN [Concomitant]
     Indication: URINARY INCONTINENCE
  4. HUMIRA [Suspect]
     Indication: RHEUMATOID ARTHRITIS
     Route: 058
     Dates: end: 20090701

REACTIONS (6)
  - PNEUMONIA [None]
  - INJECTION SITE PAIN [None]
  - COUGH [None]
  - FINGER DEFORMITY [None]
  - CREPITATIONS [None]
  - BRONCHITIS [None]
